FAERS Safety Report 11722462 (Version 1)
Quarter: 2015Q4

REPORT INFORMATION
  Report Type: Spontaneous
  Country: BR (occurrence: BR)
  Receive Date: 20151111
  Receipt Date: 20151111
  Transmission Date: 20160304
  Serious: Yes (Other)
  Sender: FDA-Public Use
  Company Number: PHHY2015BR145267

PATIENT
  Age: 82 Year
  Sex: Female

DRUGS (3)
  1. AEROLIN [Suspect]
     Active Substance: ALBUTEROL
     Indication: ASTHMA
     Route: 065
  2. SEEBRI BREEZHALER [Suspect]
     Active Substance: GLYCOPYRROLATE
     Indication: ASTHMA
     Route: 065
  3. SERETIDE [Suspect]
     Active Substance: FLUTICASONE FUROATE\SALMETEROL XINAFOATE
     Indication: ASTHMA
     Route: 065

REACTIONS (6)
  - Cardiac disorder [Unknown]
  - Blood pressure abnormal [Unknown]
  - Off label use [Unknown]
  - Cerebrovascular accident [Unknown]
  - Back pain [Unknown]
  - Thyroid disorder [Unknown]
